FAERS Safety Report 22171682 (Version 1)
Quarter: 2023Q2

REPORT INFORMATION
  Report Type: Spontaneous
  Country: AU (occurrence: AU)
  Receive Date: 20230404
  Receipt Date: 20230404
  Transmission Date: 20230722
  Serious: No
  Sender: FDA-Public Use
  Company Number: AU-009507513-2304AUS000180

PATIENT
  Age: 50 Year
  Sex: Female

DRUGS (1)
  1. LAGEVRIO [Suspect]
     Active Substance: MOLNUPIRAVIR
     Indication: COVID-19 treatment
     Dosage: 2 CAPSULES, 4 TIMES A DAY
     Route: 048

REACTIONS (1)
  - Product prescribing issue [Unknown]
